FAERS Safety Report 9239810 (Version 1)
Quarter: 2013Q2

REPORT INFORMATION
  Report Type: Spontaneous
  Country: NL (occurrence: NL)
  Receive Date: 20130418
  Receipt Date: 20130418
  Transmission Date: 20140414
  Serious: Yes (Other)
  Sender: FDA-Public Use
  Company Number: NL-AMGEN-NLDSP2013026900

PATIENT
  Age: 67 Year
  Sex: Male

DRUGS (1)
  1. ENBREL [Suspect]
     Indication: RHEUMATOID ARTHRITIS
     Dosage: 50 MG, WEEKLY
     Dates: start: 2010, end: 201210

REACTIONS (4)
  - Diabetes mellitus [Recovering/Resolving]
  - Limb discomfort [Recovering/Resolving]
  - Muscular weakness [Recovering/Resolving]
  - Nerve injury [Recovering/Resolving]
